FAERS Safety Report 5223889-5 (Version None)
Quarter: 2007Q1

REPORT INFORMATION
  Report Type: 
  Country: None (occurrence: None)
  Receive Date: 20070130
  Receipt Date: 20070119
  Transmission Date: 20070707
  Serious: Yes (Death)
  Sender: FDA-Public Use
  Company Number: US-ELI_LILLY_AND_COMPANY-US200612001823

PATIENT
  Age: 55 Year
  Sex: Male
  Weight: 68.027 kg

DRUGS (4)
  1. ZYPREXA [Suspect]
     Indication: OBSESSIVE THOUGHTS
     Dosage: 5 MG, UNK
  2. ZYPREXA [Suspect]
     Dosage: 2.5 MG, UNK
     Dates: start: 20050621
  3. XANAX                                   /USA/ [Concomitant]
     Dosage: 0.25 MG, 3/D
  4. LEXAPRO [Concomitant]
     Dosage: 20 MG, DAILY (1/D)

REACTIONS (1)
  - COMPLETED SUICIDE [None]
